FAERS Safety Report 21748734 (Version 1)
Quarter: 2022Q4

REPORT INFORMATION
  Report Type: Spontaneous
  Country: US (occurrence: None)
  Receive Date: 20221218
  Receipt Date: 20221218
  Transmission Date: 20230113
  Serious: Yes (Death)
  Sender: FDA-Public Use
  Company Number: None

PATIENT
  Age: 75 Year
  Sex: Female
  Weight: 58.5 kg

DRUGS (1)
  1. RECLAST [Suspect]
     Active Substance: ZOLEDRONIC ACID

REACTIONS (11)
  - Headache [None]
  - Nausea [None]
  - Fatigue [None]
  - Sepsis [None]
  - Uterine infection [None]
  - Intestinal resection [None]
  - Influenza like illness [None]
  - Migraine [None]
  - Organ failure [None]
  - Infusion related reaction [None]
  - Uterine necrosis [None]

NARRATIVE: CASE EVENT DATE: 20221124
